FAERS Safety Report 22141722 (Version 1)
Quarter: 2023Q1

REPORT INFORMATION
  Report Type: Spontaneous
  Country: US (occurrence: US)
  Receive Date: 20230327
  Receipt Date: 20230327
  Transmission Date: 20230417
  Serious: No
  Sender: FDA-Public Use
  Company Number: US-PFIZER INC-202300129474

PATIENT
  Age: 73 Year
  Sex: Female

DRUGS (21)
  1. IBRANCE [Suspect]
     Active Substance: PALBOCICLIB
     Dosage: 100 MG, CYCLIC (100MG DAILY, 33 WEEKS ON, ONE WEEK OFF)
     Route: 048
     Dates: start: 20230210, end: 20230301
  2. IBRANCE [Suspect]
     Active Substance: PALBOCICLIB
     Dosage: 100 MG, CYCLIC (100MG DAILY, 2 WEEKS ON, 1 WEEK OFF)
  3. ASPIRIN [Concomitant]
     Active Substance: ASPIRIN
  4. BACTRIM [Concomitant]
     Active Substance: SULFAMETHOXAZOLE\TRIMETHOPRIM
  5. BENADRYL [Concomitant]
     Active Substance: DIPHENHYDRAMINE HYDROCHLORIDE
  6. CARVEDILOL [Concomitant]
     Active Substance: CARVEDILOL
  7. CLONIDINE [Concomitant]
     Active Substance: CLONIDINE
  8. CRESTOR [Concomitant]
     Active Substance: ROSUVASTATIN CALCIUM
  9. FLONASE [Concomitant]
     Active Substance: FLUTICASONE PROPIONATE
  10. GLIPIZIDE [Concomitant]
     Active Substance: GLIPIZIDE
  11. HUMALOG [Concomitant]
     Active Substance: INSULIN LISPRO
  12. HYDROCHLOROTHIAZIDE [Concomitant]
     Active Substance: HYDROCHLOROTHIAZIDE
  13. LANTUS [Concomitant]
     Active Substance: INSULIN GLARGINE
  14. MAGNESIUM [Concomitant]
     Active Substance: MAGNESIUM
  15. OZEMPIC [Concomitant]
     Active Substance: SEMAGLUTIDE
  16. PREDNISONE [Concomitant]
     Active Substance: PREDNISONE
  17. RANITIDINE [Concomitant]
     Active Substance: RANITIDINE
  18. TACROLIMUS [Concomitant]
     Active Substance: TACROLIMUS
  19. TYLENOL [Concomitant]
     Active Substance: ACETAMINOPHEN
  20. ZORTRESS [Concomitant]
     Active Substance: EVEROLIMUS
  21. ZYRTEC [Concomitant]
     Active Substance: CETIRIZINE HYDROCHLORIDE

REACTIONS (4)
  - Oral pain [Recovering/Resolving]
  - Platelet count decreased [Recovering/Resolving]
  - White blood cell count decreased [Recovering/Resolving]
  - Red blood cell count decreased [Recovering/Resolving]

NARRATIVE: CASE EVENT DATE: 20230101
